FAERS Safety Report 9256888 (Version 2)
Quarter: 2013Q2

REPORT INFORMATION
  Report Type: Spontaneous
  Country: DE (occurrence: DE)
  Receive Date: 20130426
  Receipt Date: 20130531
  Transmission Date: 20140414
  Serious: No
  Sender: FDA-Public Use
  Company Number: DE-009507513-1304DEU012419

PATIENT
  Age: 76 Year
  Sex: Female
  Weight: 60 kg

DRUGS (6)
  1. ISENTRESS [Suspect]
     Indication: HIV INFECTION
     Dosage: 800 MG DAILY
     Route: 048
     Dates: start: 20130313
  2. MARCUMAR [Suspect]
     Indication: ATRIAL FIBRILLATION
     Dosage: 0.5 MG, QOD
     Route: 048
     Dates: end: 20130411
  3. MARCUMAR [Suspect]
     Indication: ATRIAL FIBRILLATION
     Dosage: 0.25 MG, QOD
     Route: 048
     Dates: end: 20130411
  4. TRUVADA [Concomitant]
     Indication: HIV INFECTION
     Dosage: 1 DF, QD
     Route: 048
     Dates: start: 200505
  5. RAMIPRIL [Concomitant]
     Indication: HYPERTENSION
     Dosage: 2.5 MG, QD
     Route: 048
  6. TORSEMIDE [Concomitant]
     Indication: HYPERTENSION
     Dosage: 10 MG, QD
     Route: 048

REACTIONS (1)
  - Prothrombin time prolonged [Recovered/Resolved]
